FAERS Safety Report 15370005 (Version 1)
Quarter: 2018Q3

REPORT INFORMATION
  Report Type: Spontaneous
  Country: RO (occurrence: RO)
  Receive Date: 20180911
  Receipt Date: 20180911
  Transmission Date: 20181010
  Serious: Yes (Death)
  Sender: FDA-Public Use
  Company Number: RO-TEVA-2018-RO-952193

PATIENT
  Age: 72 Year
  Sex: Female

DRUGS (12)
  1. METHOTREXATE. [Suspect]
     Active Substance: METHOTREXATE
     Indication: RHEUMATOID ARTHRITIS
     Dosage: 15 MG WEEKLY
     Route: 048
  2. ISONIAZID. [Suspect]
     Active Substance: ISONIAZID
     Indication: DISSEMINATED TUBERCULOSIS
     Dosage: 5 MG/KG DAILY;
     Route: 042
  3. RIFAMPICIN [Suspect]
     Active Substance: RIFAMPIN
     Indication: DISSEMINATED TUBERCULOSIS
     Dosage: 10 MG/KG DAILY;
     Route: 042
  4. MOXIFLOXACIN. [Concomitant]
     Active Substance: MOXIFLOXACIN
     Dosage: 400 MG/250 ML ONCE DAILY
     Route: 042
  5. PYRIDOXINE [Concomitant]
     Active Substance: PYRIDOXINE
     Route: 048
  6. NAPROXEN. [Concomitant]
     Active Substance: NAPROXEN
     Route: 048
  7. ESOMEPRAZOLE [Concomitant]
     Active Substance: ESOMEPRAZOLE
     Route: 048
  8. PYRAZINAMIDE. [Suspect]
     Active Substance: PYRAZINAMIDE
     Indication: DISSEMINATED TUBERCULOSIS
     Dosage: 30 MG/KG DAILY;
     Route: 042
  9. MEROPENEM. [Concomitant]
     Active Substance: MEROPENEM
     Dosage: 1 G THREE TIMES DAILY
     Route: 042
  10. ADALIMUMAB [Suspect]
     Active Substance: ADALIMUMAB
     Indication: RHEUMATOID ARTHRITIS
     Dosage: 40 MG EVERY OTHER WEEK
     Route: 058
     Dates: start: 201506
  11. ETHAMBUTOL [Suspect]
     Active Substance: ETHAMBUTOL HYDROCHLORIDE
     Indication: DISSEMINATED TUBERCULOSIS
     Dosage: 25 MG/KG DAILY;
     Route: 042
  12. FLUCONAZOLE. [Concomitant]
     Active Substance: FLUCONAZOLE
     Route: 042

REACTIONS (6)
  - Gastrointestinal haemorrhage [Fatal]
  - Acute respiratory failure [Fatal]
  - Hepatic failure [Fatal]
  - Paradoxical drug reaction [Fatal]
  - Renal failure [Fatal]
  - Disseminated tuberculosis [Fatal]
